FAERS Safety Report 16260528 (Version 2)
Quarter: 2020Q3

REPORT INFORMATION
  Report Type: Spontaneous
  Country: US (occurrence: US)
  Receive Date: 20190501
  Receipt Date: 20200825
  Transmission Date: 20201102
  Serious: Yes (Hospitalization)
  Sender: FDA-Public Use
  Company Number: US-IPSEN BIOPHARMACEUTICALS, INC.-2019-06894

PATIENT
  Age: 73 Year
  Sex: Male

DRUGS (42)
  1. BUDEPRION [Concomitant]
     Active Substance: BUPROPION HYDROCHLORIDE
  2. IBUPROFEN. [Concomitant]
     Active Substance: IBUPROFEN
  3. PRAMIPEXOLE. [Concomitant]
     Active Substance: PRAMIPEXOLE
  4. GLIPIZIDE. [Concomitant]
     Active Substance: GLIPIZIDE
  5. PREDNISONE. [Concomitant]
     Active Substance: PREDNISONE
  6. DONEPEZIL. [Concomitant]
     Active Substance: DONEPEZIL
  7. DEXAMETH PHOSPHORUS [Concomitant]
  8. FUROSEMIDE. [Concomitant]
     Active Substance: FUROSEMIDE
  9. TESTOST CYP [Concomitant]
     Active Substance: TESTOSTERONE CYPIONATE
  10. SOMATULINE DEPOT [Suspect]
     Active Substance: LANREOTIDE ACETATE
     Indication: CARCINOID TUMOUR
     Route: 058
     Dates: start: 20140405
  11. DHEA [Concomitant]
     Active Substance: PRASTERONE
  12. OCTREOTIDE. [Concomitant]
     Active Substance: OCTREOTIDE
  13. AZOR [Concomitant]
     Active Substance: AMLODIPINE BESYLATE\OLMESARTAN MEDOXOMIL
  14. PROMETHAZINE [Concomitant]
     Active Substance: PROMETHAZINE HYDROCHLORIDE
  15. LIOTHYRONINE [Concomitant]
     Active Substance: LIOTHYRONINE
  16. CALCITRIOL. [Concomitant]
     Active Substance: CALCITRIOL
  17. CEPHALEXIN. [Concomitant]
     Active Substance: CEPHALEXIN
  18. HYDROCHLOROT [Concomitant]
     Active Substance: HYDROCHLOROTHIAZIDE
     Dosage: 25
  19. LOSARTAN. [Concomitant]
     Active Substance: LOSARTAN
  20. BENICAR [Concomitant]
     Active Substance: OLMESARTAN MEDOXOMIL
  21. HYDROCO/APAP [Concomitant]
     Active Substance: ACETAMINOPHEN\HYDROCODONE
  22. AMLODIPINE [Concomitant]
     Active Substance: AMLODIPINE BESYLATE
  23. SYNTHROID [Concomitant]
     Active Substance: LEVOTHYROXINE SODIUM
  24. VIAGRA [Concomitant]
     Active Substance: SILDENAFIL CITRATE
  25. VITAMIN D [Concomitant]
     Active Substance: VITAMIN D NOS
  26. METFORMIN [Concomitant]
     Active Substance: METFORMIN HYDROCHLORIDE
  27. POTASSIUM CHLORIDE MICRO [Concomitant]
  28. SOMATULINE DEPOT [Suspect]
     Active Substance: LANREOTIDE ACETATE
     Indication: HYPOPITUITARISM
  29. MYRBETRIQ [Concomitant]
     Active Substance: MIRABEGRON
  30. TAMSULOSIN [Concomitant]
     Active Substance: TAMSULOSIN
  31. LUNESTA [Concomitant]
     Active Substance: ESZOPICLONE
  32. KETOCONAZOLE. [Concomitant]
     Active Substance: KETOCONAZOLE
  33. SOMATULINE DEPOT [Suspect]
     Active Substance: LANREOTIDE ACETATE
     Indication: OFF LABEL USE
  34. LORAZEPAM. [Concomitant]
     Active Substance: LORAZEPAM
  35. LAMOTRIGINE. [Concomitant]
     Active Substance: LAMOTRIGINE
  36. GLIMEPIRIDE. [Concomitant]
     Active Substance: GLIMEPIRIDE
  37. ANASTROZOLE. [Concomitant]
     Active Substance: ANASTROZOLE
  38. OXYCODONE AND ACETAMINOPHEN [Concomitant]
     Active Substance: ACETAMINOPHEN\OXYCODONE HYDROCHLORIDE
  39. SIMVASTATIN. [Concomitant]
     Active Substance: SIMVASTATIN
  40. CYCLOBENZAPRINE. [Concomitant]
     Active Substance: CYCLOBENZAPRINE
  41. LEVOTHYROXINE. [Concomitant]
     Active Substance: LEVOTHYROXINE
  42. TESTIM [Concomitant]
     Active Substance: TESTOSTERONE

REACTIONS (4)
  - Off label use [Unknown]
  - Product dose omission issue [Unknown]
  - Urinary tract infection [Not Recovered/Not Resolved]
  - Fatigue [Not Recovered/Not Resolved]

NARRATIVE: CASE EVENT DATE: 20150707
